FAERS Safety Report 24297959 (Version 3)
Quarter: 2024Q4

REPORT INFORMATION
  Report Type: Report from Study
  Country: TH (occurrence: TH)
  Receive Date: 20240909
  Receipt Date: 20241111
  Transmission Date: 20250115
  Serious: Yes (Other)
  Sender: NOVARTIS
  Company Number: TH-002147023-NVSC2024TH136002

PATIENT
  Sex: Female

DRUGS (2)
  1. KISQALI [Suspect]
     Active Substance: RIBOCICLIB
     Indication: Breast cancer metastatic
     Dosage: 200 MG, QD (2 TABLETS), BEFORE BREAKFAST,  FOR  21 DAYS THEN SKIPPING 7 DAYS
     Route: 048
  2. KISQALI [Suspect]
     Active Substance: RIBOCICLIB
     Dosage: 1 DOSAGE FORM, QD
     Route: 048

REACTIONS (3)
  - Hepatitis [Recovering/Resolving]
  - Hepatic steatosis [Unknown]
  - Drug resistance [Unknown]
